FAERS Safety Report 5581632-4 (Version None)
Quarter: 2008Q1

REPORT INFORMATION
  Report Type: 
  Country: None (occurrence: None)
  Receive Date: 20080102
  Receipt Date: 20080102
  Transmission Date: 20080703
  Serious: Yes (Other)
  Sender: FDA-Public Use
  Company Number: None

PATIENT
  Age: 44 Year
  Sex: Female
  Weight: 81.6475 kg

DRUGS (14)
  1. CHANTIX [Suspect]
     Indication: SMOKING CESSATION THERAPY
     Dosage: 1 MG TWICE A DAY PO
     Route: 048
     Dates: start: 20071119, end: 20071225
  2. ALPRAZOLAM [Concomitant]
  3. CLONIDINE [Concomitant]
  4. BUTALBITAL [Concomitant]
  5. HYDROCODONE [Concomitant]
  6. PREVACID [Concomitant]
  7. ASTELIN [Concomitant]
  8. NASONEX [Concomitant]
  9. HYOSCYAMINE-SL [Concomitant]
  10. DILANTIN [Concomitant]
  11. GABAPENTIN [Concomitant]
  12. BENZONATATE [Concomitant]
  13. SPIRIVA [Concomitant]
  14. ORLISTAT-ALLI [Concomitant]

REACTIONS (9)
  - ANGER [None]
  - DEPRESSION [None]
  - DRUG EFFECT DECREASED [None]
  - LOSS OF LIBIDO [None]
  - MALAISE [None]
  - MOOD SWINGS [None]
  - NAUSEA [None]
  - VOMITING [None]
  - WEIGHT INCREASED [None]
